FAERS Safety Report 7016273-5 (Version None)
Quarter: 2010Q3

REPORT INFORMATION
  Report Type: 
  Country: None (occurrence: None)
  Receive Date: 20100909
  Receipt Date: 20100428
  Transmission Date: 20110219
  Serious: No
  Sender: FDA-Public Use
  Company Number: 2010SP024841

PATIENT
  Age: 30 Year
  Sex: Female

DRUGS (8)
  1. SAPHRIS [Suspect]
     Indication: BIPOLAR DISORDER
     Dosage: 10 MG;HS;SL,
     Route: 060
     Dates: start: 20100402
  2. GABAPENTIN (CON.) [Concomitant]
  3. CLONAZEPAM (CON.) [Concomitant]
  4. LITHIUM CARBONATE ER (LITHIUM CARBONATE) (CON.) [Concomitant]
  5. LEVOTHYROXIN (CON.) [Concomitant]
  6. VYVANSE (CON.) [Concomitant]
  7. ADDERALL (CON.) [Concomitant]
  8. GABAPENTIN (CON.) [Concomitant]

REACTIONS (2)
  - INAPPROPRIATE SCHEDULE OF DRUG ADMINISTRATION [None]
  - ORAL MUCOSA EROSION [None]
